FAERS Safety Report 23960508 (Version 1)
Quarter: 2024Q2

REPORT INFORMATION
  Report Type: Spontaneous
  Country: US (occurrence: US)
  Receive Date: 20240611
  Receipt Date: 20240611
  Transmission Date: 20240716
  Serious: Yes (Hospitalization, Other)
  Sender: FDA-Public Use
  Company Number: US-SUN PHARMACEUTICAL INDUSTRIES LTD-2024R1-450146

PATIENT
  Age: 66 Year
  Sex: Male

DRUGS (4)
  1. GABAPENTIN [Interacting]
     Active Substance: GABAPENTIN
     Indication: Neuralgia
     Dosage: UNK
     Route: 065
  2. MIDODRINE [Interacting]
     Active Substance: MIDODRINE
     Indication: Hepatorenal syndrome
     Dosage: 10 MILLIGRAM Q8H
     Route: 048
  3. ALBUMIN HUMAN [Concomitant]
     Active Substance: ALBUMIN HUMAN
     Indication: Hepatorenal syndrome
     Dosage: 25 GRAM Q12H
     Route: 042
  4. OCTREOTIDE [Concomitant]
     Active Substance: OCTREOTIDE\OCTREOTIDE ACETATE
     Indication: Hepatorenal syndrome
     Dosage: 100 MICROGRAM/SQ. METER Q8H
     Route: 058

REACTIONS (3)
  - Acute kidney injury [Unknown]
  - Drug interaction [Unknown]
  - Urinary retention [Unknown]
